FAERS Safety Report 6989196-5 (Version None)
Quarter: 2010Q3

REPORT INFORMATION
  Report Type: 
  Country: None (occurrence: None)
  Receive Date: 20100916
  Receipt Date: 20090828
  Transmission Date: 20110219
  Serious: Yes (Other)
  Sender: FDA-Public Use
  Company Number: GB-PFIZER INC-2009252205

PATIENT
  Sex: Female
  Weight: 56 kg

DRUGS (4)
  1. LYRICA [Suspect]
     Indication: NEURALGIA
     Dosage: 150 MG, UNK
     Dates: end: 20090701
  2. LYRICA [Suspect]
     Dosage: 300 MG, UNK
  3. LYRICA [Suspect]
     Dosage: 450 MG, UNK
     Route: 048
     Dates: start: 20060101
  4. ELLESTE-SOLO [Concomitant]
     Indication: MENOPAUSE
     Dosage: 1 MG, 1X/DAY
     Dates: start: 20060901

REACTIONS (15)
  - ABDOMINAL TENDERNESS [None]
  - ALOPECIA [None]
  - DIARRHOEA [None]
  - EYE PRURITUS [None]
  - FATIGUE [None]
  - FLUSHING [None]
  - HEADACHE [None]
  - HYPERHIDROSIS [None]
  - INFLUENZA LIKE ILLNESS [None]
  - INSOMNIA [None]
  - LETHARGY [None]
  - NAUSEA [None]
  - NERVOUSNESS [None]
  - PALPITATIONS [None]
  - WEIGHT DECREASED [None]
